FAERS Safety Report 17005650 (Version 1)
Quarter: 2019Q4

REPORT INFORMATION
  Report Type: Spontaneous
  Country: FR (occurrence: FR)
  Receive Date: 20191107
  Receipt Date: 20191107
  Transmission Date: 20200122
  Serious: Yes (Hospitalization)
  Sender: FDA-Public Use
  Company Number: FR-MYLANLABS-2019M1105955

PATIENT
  Age: 89 Year
  Sex: Male
  Weight: 66 kg

DRUGS (1)
  1. VANCOMYCINE MYLAN 500 MG POUDRE POUR SOLUTION POUR PERFUSION [Suspect]
     Active Substance: VANCOMYCIN
     Indication: DEVICE RELATED INFECTION
     Dosage: 40MG/ML
     Route: 041
     Dates: start: 20190319, end: 20190320

REACTIONS (3)
  - Product preparation error [Not Recovered/Not Resolved]
  - Skin necrosis [Not Recovered/Not Resolved]
  - Extravasation [Not Recovered/Not Resolved]

NARRATIVE: CASE EVENT DATE: 20190319
